FAERS Safety Report 6425888-4 (Version None)
Quarter: 2009Q4

REPORT INFORMATION
  Report Type: 
  Country: None (occurrence: None)
  Receive Date: 20091029
  Receipt Date: 20091020
  Transmission Date: 20100525
  Serious: Yes (Other)
  Sender: FDA-Public Use
  Company Number: 231503J09USA

PATIENT
  Age: 35 Year
  Sex: Female

DRUGS (6)
  1. REBIF [Suspect]
     Indication: MULTIPLE SCLEROSIS
     Dosage: 44 MCG, 3 IN 1 WEEKS, SUBCUTANEOUS
     Route: 058
     Dates: start: 20090904
  2. ENCORT (HYDROCORTISONE ACEPONATE) [Concomitant]
  3. PENTASA [Concomitant]
  4. NEXIUM [Concomitant]
  5. ALEVE [Concomitant]
  6. IRON PILL (IRON) [Concomitant]

REACTIONS (5)
  - BLINDNESS TRANSIENT [None]
  - BLINDNESS UNILATERAL [None]
  - OPTIC ATROPHY [None]
  - OPTIC NEURITIS [None]
  - RASH MACULAR [None]
